FAERS Safety Report 6706851-2 (Version None)
Quarter: 2010Q2

REPORT INFORMATION
  Report Type: 
  Country: None (occurrence: None)
  Receive Date: 20100428
  Receipt Date: 20100420
  Transmission Date: 20101027
  Serious: Yes (Hospitalization, Other)
  Sender: FDA-Public Use
  Company Number: 010492

PATIENT
  Sex: Male
  Weight: 69.4 kg

DRUGS (5)
  1. KEPPRA [Suspect]
     Indication: CONVULSION
     Dosage: (2500 MG, 1000 MG IN MORNING AND 1500 MG IN THE EVENING ORAL)
     Route: 048
     Dates: start: 20090501
  2. KEPPRA [Suspect]
     Indication: CONVULSION
     Dosage: (1000 MG BID ORAL)
     Route: 048
  3. LACOSAMIDE [Suspect]
     Indication: CONVULSION
     Dosage: (50 MG BID ORAL), (100 MG BID ORAL)
     Route: 048
  4. TEGRETOL [Concomitant]
  5. TEMODAR [Concomitant]

REACTIONS (4)
  - BRAIN NEOPLASM MALIGNANT [None]
  - CONVULSION [None]
  - INAPPROPRIATE SCHEDULE OF DRUG ADMINISTRATION [None]
  - MEDICATION ERROR [None]
